FAERS Safety Report 17183653 (Version 1)
Quarter: 2019Q4

REPORT INFORMATION
  Report Type: Spontaneous
  Country: CN (occurrence: CN)
  Receive Date: 20191220
  Receipt Date: 20191220
  Transmission Date: 20200122
  Serious: Yes (Other)
  Sender: FDA-Public Use
  Company Number: CN-PFIZER INC-2019546382

PATIENT
  Age: 14 Month
  Sex: Male
  Weight: 11 kg

DRUGS (2)
  1. AZITHROMYCIN ANHYDROUS. [Suspect]
     Active Substance: AZITHROMYCIN ANHYDROUS
     Indication: PNEUMONIA
     Dosage: 0.1 G, 1X/DAY
     Route: 041
     Dates: start: 20191211, end: 20191213
  2. GLUCOSE INJECTION [Concomitant]
     Active Substance: DEXTROSE
     Indication: VEHICLE SOLUTION USE
     Dosage: 200 ML, 1X/DAY
     Route: 041
     Dates: start: 20191211, end: 20191213

REACTIONS (8)
  - Asphyxia [Recovering/Resolving]
  - Product use issue [Unknown]
  - Erythema [Recovering/Resolving]
  - Flushing [Recovering/Resolving]
  - Respiratory disorder [Recovering/Resolving]
  - Stridor [Recovering/Resolving]
  - Off label use [Unknown]
  - Cough [Recovering/Resolving]

NARRATIVE: CASE EVENT DATE: 20191211
